FAERS Safety Report 7196134-1 (Version None)
Quarter: 2010Q4

REPORT INFORMATION
  Report Type: 
  Country: None (occurrence: None)
  Receive Date: 20101223
  Receipt Date: 20101015
  Transmission Date: 20110411
  Serious: No
  Sender: FDA-Public Use
  Company Number: US-AMGEN-USASP2010001183

PATIENT

DRUGS (6)
  1. ENBREL [Suspect]
     Indication: PRODUCT USED FOR UNKNOWN INDICATION
     Dosage: 50 MG, QWK
     Route: 058
  2. CALTRATE 600 + D [Concomitant]
  3. PREDNISONE [Concomitant]
     Dosage: 10 MG, UNK
  4. METHOTREXATE [Concomitant]
     Dosage: 2.5 MG, UNK
  5. VITAMIN C                          /00008001/ [Concomitant]
     Dosage: 250 MG, UNK
  6. FOLIC ACID [Concomitant]
     Dosage: 400 MG, UNK

REACTIONS (2)
  - DANDRUFF [None]
  - DRY SKIN [None]
